FAERS Safety Report 6203068-5 (Version None)
Quarter: 2009Q2

REPORT INFORMATION
  Report Type: 
  Country: None (occurrence: None)
  Receive Date: 20090527
  Receipt Date: 20090519
  Transmission Date: 20091009
  Serious: Yes (Other)
  Sender: FDA-Public Use
  Company Number: US-ELI_LILLY_AND_COMPANY-US200905004197

PATIENT
  Sex: Male

DRUGS (4)
  1. HUMALOG [Suspect]
     Dosage: 9 U, UNK
     Dates: start: 20040101
  2. HUMALOG [Suspect]
     Dosage: 9 U, UNK
     Dates: start: 20040101
  3. HUMALOG [Suspect]
  4. HUMALOG MIX 75/25 [Suspect]

REACTIONS (2)
  - CEREBROVASCULAR ACCIDENT [None]
  - DEMENTIA [None]
